FAERS Safety Report 5631942-7 (Version None)
Quarter: 2008Q1

REPORT INFORMATION
  Report Type: 
  Country: None (occurrence: None)
  Receive Date: 20080220
  Receipt Date: 20080209
  Transmission Date: 20080703
  Serious: Yes (Other)
  Sender: FDA-Public Use
  Company Number: GB-NOVOPROD-272249

PATIENT
  Sex: Female

DRUGS (2)
  1. NOVORAPID [Suspect]
     Indication: TYPE 1 DIABETES MELLITUS
     Dosage: 25 IU, QD
     Route: 058
  2. LANTUS [Concomitant]
     Dosage: 8 IU, QD
     Route: 058

REACTIONS (3)
  - COUGH [None]
  - HYPERGLYCAEMIA [None]
  - HYPOGLYCAEMIA [None]
